FAERS Safety Report 4808950-9 (Version None)
Quarter: 2005Q4

REPORT INFORMATION
  Report Type: 
  Country: None (occurrence: None)
  Receive Date: 20051025
  Receipt Date: 20020128
  Transmission Date: 20060501
  Serious: Yes (Life-Threatening, Hospitalization)
  Sender: FDA-Public Use
  Company Number: DE-ROCHE-305998

PATIENT
  Age: 34 Year
  Sex: Female
  Weight: 65 kg

DRUGS (3)
  1. PEG-INTERFERON ALFA 2A (RO 25-8310) [Suspect]
     Route: 058
     Dates: start: 20010510, end: 20020128
  2. RIBAVIRIN [Suspect]
     Route: 048
     Dates: start: 20010510, end: 20020128
  3. L-THYROXINE [Concomitant]
     Route: 048
     Dates: start: 20010907

REACTIONS (10)
  - ALOPECIA [None]
  - ASCITES [None]
  - AUTOIMMUNE HEPATITIS [None]
  - ENCEPHALOPATHY [None]
  - HEPATIC CIRRHOSIS [None]
  - HYPERTHYROIDISM [None]
  - INFLUENZA LIKE ILLNESS [None]
  - JAUNDICE [None]
  - SPLENOMEGALY [None]
  - TRANSAMINASES INCREASED [None]
